FAERS Safety Report 19504930 (Version 1)
Quarter: 2021Q3

REPORT INFORMATION
  Report Type: Spontaneous
  Country: US (occurrence: US)
  Receive Date: 20210706
  Receipt Date: 20210706
  Transmission Date: 20211014
  Serious: Yes (Death)
  Sender: FDA-Public Use
  Company Number: None

PATIENT
  Age: 69 Year
  Sex: Female
  Weight: 62.6 kg

DRUGS (1)
  1. DICLOFENAC SODIUM TOPICAL GEL 1% [Suspect]
     Active Substance: DICLOFENAC SODIUM
     Indication: ARTHRITIS
     Dosage: ?          QUANTITY:REFER TO DOSING CA;?
     Route: 058
     Dates: end: 20210427

REACTIONS (3)
  - Myocardial infarction [None]
  - Internal haemorrhage [None]
  - Haematemesis [None]

NARRATIVE: CASE EVENT DATE: 20210427
